FAERS Safety Report 20257905 (Version 1)
Quarter: 2021Q4

REPORT INFORMATION
  Report Type: Spontaneous
  Country: SE (occurrence: SE)
  Receive Date: 20211230
  Receipt Date: 20211230
  Transmission Date: 20220303
  Serious: Yes (Congenital Anomaly)
  Sender: FDA-Public Use
  Company Number: None

PATIENT
  Sex: Male

DRUGS (4)
  1. PROMETHAZINE HYDROCHLORIDE [Suspect]
     Active Substance: PROMETHAZINE HYDROCHLORIDE
     Indication: Nausea
     Dosage: UNK
     Route: 064
  2. PROMETHAZINE HYDROCHLORIDE [Suspect]
     Active Substance: PROMETHAZINE HYDROCHLORIDE
     Indication: Insomnia
     Dosage: 25 MILLIGRAM (25 MG TWICE DAILY IF NECESSARY)
     Route: 064
  3. SERTRALINE HYDROCHLORIDE [Suspect]
     Active Substance: SERTRALINE HYDROCHLORIDE
     Indication: Depression
     Dosage: 50 MG ONCE DAILY
     Route: 064
  4. CYMBALTA [Suspect]
     Active Substance: DULOXETINE HYDROCHLORIDE
     Indication: Depression
     Dosage: 60 MG ONCE DAILY
     Route: 064

REACTIONS (10)
  - Coloboma [Unknown]
  - Corectopia [Not Recovered/Not Resolved]
  - Single functional kidney [Not Recovered/Not Resolved]
  - Ventricular septal defect [Unknown]
  - Intestinal malrotation [Unknown]
  - Atrial septal defect [Not Recovered/Not Resolved]
  - Arteriovenous malformation [Not Recovered/Not Resolved]
  - Volvulus [Not Recovered/Not Resolved]
  - Pulmonary hypertension [Unknown]
  - Foetal exposure during pregnancy [Recovered/Resolved]

NARRATIVE: CASE EVENT DATE: 20190101
